FAERS Safety Report 13545176 (Version 4)
Quarter: 2018Q1

REPORT INFORMATION
  Report Type: Spontaneous
  Country: JP (occurrence: JP)
  Receive Date: 20170515
  Receipt Date: 20180316
  Transmission Date: 20180508
  Serious: Yes (Death)
  Sender: FDA-Public Use
  Company Number: JP-ORPHAN EUROPE-2020742

PATIENT
  Age: 2 Month
  Sex: Female
  Weight: 3.1 kg

DRUGS (7)
  1. BUPHENYL [Concomitant]
     Active Substance: SODIUM PHENYLBUTYRATE
     Dates: start: 201610, end: 20161228
  2. MERCAZOLE [Concomitant]
     Active Substance: CARBIMAZOLE
     Dates: start: 20161213, end: 20161228
  3. CARBAGLU [Suspect]
     Active Substance: CARGLUMIC ACID
     Indication: HYPERAMMONAEMIA
     Route: 050
     Dates: start: 20161214, end: 20161228
  4. L-CARNITINE [Concomitant]
     Active Substance: LEVOCARNITINE
     Dates: start: 201610, end: 20161228
  5. ARGININE [Concomitant]
     Active Substance: ARGININE
     Dates: start: 201610, end: 20161228
  6. CITRULLINE [Concomitant]
     Active Substance: CITRULLINE
     Dates: start: 201610, end: 20161228
  7. BIOTIN [Concomitant]
     Active Substance: BIOTIN
     Dates: start: 201610, end: 20161228

REACTIONS (4)
  - Drug ineffective for unapproved indication [Fatal]
  - Concomitant disease aggravated [Unknown]
  - Off label use [Recovered/Resolved]
  - Hepatic failure [Unknown]

NARRATIVE: CASE EVENT DATE: 20170103
